FAERS Safety Report 9366600 (Version 1)
Quarter: 2013Q2

REPORT INFORMATION
  Report Type: Spontaneous
  Country: DE (occurrence: None)
  Receive Date: 20130620
  Receipt Date: 20130620
  Transmission Date: 20140414
  Serious: Yes (Other)
  Sender: FDA-Public Use
  Company Number: TPG2013A00649

PATIENT
  Age: 64 Year
  Sex: Male

DRUGS (2)
  1. ACTOS (PIOGLITAZONE HYDROCHLORIDE) [Suspect]
     Indication: PRODUCT USED FOR UNKNOWN INDICATION
     Route: 048
  2. METFORMIN (METFORMIN) [Concomitant]

REACTIONS (5)
  - Colon cancer [None]
  - Pruritus [None]
  - Abdominal discomfort [None]
  - Genital ulceration [None]
  - Colon cancer [None]
